FAERS Safety Report 6826999-1 (Version None)
Quarter: 2010Q3

REPORT INFORMATION
  Report Type: 
  Country: None (occurrence: None)
  Receive Date: 20100709
  Receipt Date: 20100629
  Transmission Date: 20110219
  Serious: Yes (Other)
  Sender: FDA-Public Use
  Company Number: US-PFIZER INC-2010080971

PATIENT
  Sex: Female

DRUGS (6)
  1. XANAX [Suspect]
  2. IBANDRONATE SODIUM [Suspect]
     Indication: OSTEOPOROSIS
  3. TYLENOL (CAPLET) [Suspect]
  4. VITAMIN D [Suspect]
  5. CALCIUM [Suspect]
  6. TETANUS VACCINE [Suspect]

REACTIONS (3)
  - CARDIAC FLUTTER [None]
  - GASTRIC DISORDER [None]
  - NASAL OEDEMA [None]
